FAERS Safety Report 15689421 (Version 1)
Quarter: 2018Q4

REPORT INFORMATION
  Report Type: Spontaneous
  Country: US (occurrence: US)
  Receive Date: 20181205
  Receipt Date: 20181205
  Transmission Date: 20190205
  Serious: No
  Sender: FDA-Public Use
  Company Number: US-GLAXOSMITHKLINE-US2018GSK217430

PATIENT
  Sex: Female

DRUGS (41)
  1. SPIRIVA [Suspect]
     Active Substance: TIOTROPIUM BROMIDE MONOHYDRATE
     Indication: PRODUCT USED FOR UNKNOWN INDICATION
  2. BENTYL [Concomitant]
     Active Substance: DICYCLOMINE HYDROCHLORIDE
  3. AMBIEN [Concomitant]
     Active Substance: ZOLPIDEM TARTRATE
  4. NORVASC [Concomitant]
     Active Substance: AMLODIPINE BESYLATE
  5. ALTACE [Concomitant]
     Active Substance: RAMIPRIL
  6. NAPROSYN [Concomitant]
     Active Substance: NAPROXEN
  7. TIAZAC [Concomitant]
     Active Substance: DILTIAZEM HYDROCHLORIDE
  8. COREG [Suspect]
     Active Substance: CARVEDILOL
  9. METHOTREXATE. [Concomitant]
     Active Substance: METHOTREXATE
  10. HYDROCHLOROTHIAZIDE. [Concomitant]
     Active Substance: HYDROCHLOROTHIAZIDE
  11. CARDURA [Concomitant]
     Active Substance: DOXAZOSIN MESYLATE
  12. ULTRAM [Concomitant]
     Active Substance: TRAMADOL HYDROCHLORIDE
  13. ACCUPRIL [Concomitant]
     Active Substance: QUINAPRIL HYDROCHLORIDE
  14. CYMBALTA [Concomitant]
     Active Substance: DULOXETINE HYDROCHLORIDE
  15. DILAUDID [Concomitant]
     Active Substance: HYDROMORPHONE HYDROCHLORIDE
  16. KORLYM [Concomitant]
     Active Substance: MIFEPRISTONE
  17. RELAFEN [Concomitant]
     Active Substance: NABUMETONE
  18. BIAXIN [Concomitant]
     Active Substance: CLARITHROMYCIN
  19. ASMANEX [Suspect]
     Active Substance: MOMETASONE FUROATE
     Indication: PRODUCT USED FOR UNKNOWN INDICATION
  20. GABAPENTIN. [Concomitant]
     Active Substance: GABAPENTIN
  21. LEXISCAN [Concomitant]
     Active Substance: REGADENOSON
  22. ROBAXIN [Concomitant]
     Active Substance: METHOCARBAMOL
  23. TIZANIDINE. [Concomitant]
     Active Substance: TIZANIDINE
  24. PLAQUENIL [Concomitant]
     Active Substance: HYDROXYCHLOROQUINE SULFATE
  25. MEPILEX AG [Concomitant]
  26. PERCOCET [Concomitant]
     Active Substance: ACETAMINOPHEN\OXYCODONE HYDROCHLORIDE
  27. TOPAMAX [Concomitant]
     Active Substance: TOPIRAMATE
  28. ADVAIR HFA [Suspect]
     Active Substance: FLUTICASONE PROPIONATE\SALMETEROL XINAFOATE
     Indication: PRODUCT USED FOR UNKNOWN INDICATION
  29. HYDROCHLOROTHIAZIDE + TRIAMTERENE [Concomitant]
     Active Substance: HYDROCHLOROTHIAZIDE\TRIAMTERENE
  30. ZEBETA [Concomitant]
     Active Substance: BISOPROLOL FUMARATE
  31. HYZAAR [Concomitant]
     Active Substance: HYDROCHLOROTHIAZIDE\LOSARTAN POTASSIUM
  32. QUININE SULPHATE [Concomitant]
     Active Substance: QUININE SULFATE
  33. TENORMIN [Concomitant]
     Active Substance: ATENOLOL
  34. CIMZIA [Concomitant]
     Active Substance: CERTOLIZUMAB PEGOL
  35. LOZOL [Concomitant]
     Active Substance: INDAPAMIDE
  36. ALBUTEROL. [Suspect]
     Active Substance: ALBUTEROL
  37. FLAGYL [Concomitant]
     Active Substance: METRONIDAZOLE\METRONIDAZOLE HYDROCHLORIDE
  38. SOMA [Concomitant]
     Active Substance: CARISOPRODOL
  39. LYRICA [Concomitant]
     Active Substance: PREGABALIN
  40. PROCARDIA [Concomitant]
     Active Substance: NIFEDIPINE
  41. HYDRALAZINE [Concomitant]
     Active Substance: HYDRALAZINE HYDROCHLORIDE

REACTIONS (3)
  - Bronchospasm [Unknown]
  - Nausea [Unknown]
  - Heart rate increased [Unknown]
